FAERS Safety Report 4366956-0 (Version None)
Quarter: 2004Q2

REPORT INFORMATION
  Report Type: 
  Country: None (occurrence: None)
  Receive Date: 20040527
  Receipt Date: 20040527
  Transmission Date: 20050107
  Serious: Yes (Hospitalization)
  Sender: FDA-Public Use
  Company Number: None

PATIENT
  Age: 62 Year
  Sex: Male
  Weight: 73.4827 kg

DRUGS (2)
  1. THALIDOMIDE 50 MG CELGENE [Suspect]
     Indication: MULTIPLE MYELOMA
     Dosage: 50 MG QHS ORAL
     Route: 048
     Dates: start: 20040428, end: 20040524
  2. DEXAMETHASONE [Concomitant]

REACTIONS (2)
  - HAEMATOCRIT DECREASED [None]
  - HAEMOGLOBIN DECREASED [None]
